FAERS Safety Report 13953149 (Version 1)
Quarter: 2017Q3

REPORT INFORMATION
  Report Type: Report from Study
  Country: US (occurrence: US)
  Receive Date: 20170911
  Receipt Date: 20170911
  Transmission Date: 20171128
  Serious: Yes (Hospitalization)
  Sender: FDA-Public Use
  Company Number: US-ROCHE-1901187

PATIENT
  Age: 79 Year
  Sex: Female
  Weight: 60.84 kg

DRUGS (14)
  1. PROAIR (UNITED STATES) [Concomitant]
  2. CITALOPRAM [Concomitant]
     Active Substance: CITALOPRAM HYDROBROMIDE
  3. ADVAIR [Concomitant]
  4. ATENOLOL. [Concomitant]
     Active Substance: ATENOLOL
  5. NITROGLYCERIN. [Concomitant]
     Active Substance: NITROGLYCERIN
  6. OMEPRAZOLE. [Concomitant]
     Active Substance: OMEPRAZOLE
  7. COUMADIN (UNITED STATES) [Concomitant]
  8. PREDNISONE. [Concomitant]
     Active Substance: PREDNISONE
  9. MANGANESE [Concomitant]
     Active Substance: MANGANESE\MANGANESE CHLORIDE
  10. METFORMIN [Concomitant]
     Route: 065
  11. ATORVASTATIN [Concomitant]
     Active Substance: ATORVASTATIN
  12. ESBRIET [Suspect]
     Active Substance: PIRFENIDONE
     Indication: IDIOPATHIC PULMONARY FIBROSIS
     Dosage: ONE CAPSULES THREE TIMES A DAY; ONGOING: YES
     Route: 048
     Dates: start: 20170224
  13. THYMOL [Concomitant]
     Active Substance: THYMOL
  14. LEVOTHYROXINE. [Concomitant]
     Active Substance: LEVOTHYROXINE

REACTIONS (6)
  - Malaise [Recovered/Resolved]
  - Fatigue [Not Recovered/Not Resolved]
  - Dyspnoea [Not Recovered/Not Resolved]
  - Malaise [Not Recovered/Not Resolved]
  - Nausea [Unknown]
  - Dyspnoea [Not Recovered/Not Resolved]

NARRATIVE: CASE EVENT DATE: 20170224
